FAERS Safety Report 12232802 (Version 1)
Quarter: 2016Q2

REPORT INFORMATION
  Report Type: Other
  Country: CA (occurrence: CA)
  Receive Date: 20160402
  Receipt Date: 20160402
  Transmission Date: 20160815
  Serious: Yes (Other)
  Sender: FDA-Public Use
  Company Number: CA-LUPIN PHARMACEUTICALS INC.-2015-03573

PATIENT
  Age: 15 Year
  Sex: Male

DRUGS (4)
  1. OLANZAPINE. [Suspect]
     Active Substance: OLANZAPINE
     Indication: SCHIZOPHRENIA
     Route: 065
  2. RISPERIDONE. [Suspect]
     Active Substance: RISPERIDONE
     Dosage: 3 MG/DAY
     Route: 065
  3. RISPERIDONE. [Suspect]
     Active Substance: RISPERIDONE
     Indication: SCHIZOPHRENIA
     Route: 065
  4. ZIPRASIDONE. [Suspect]
     Active Substance: ZIPRASIDONE
     Indication: SCHIZOPHRENIA
     Dosage: 40 MG/DAY
     Route: 065

REACTIONS (1)
  - Oculogyric crisis [Recovered/Resolved]
